FAERS Safety Report 12100160 (Version 1)
Quarter: 2016Q1

REPORT INFORMATION
  Report Type: Spontaneous
  Country: US (occurrence: None)
  Receive Date: 20160219
  Receipt Date: 20160219
  Transmission Date: 20160526
  Serious: Yes (Other)
  Sender: FDA-Public Use
  Company Number: None

PATIENT
  Age: 52 Year
  Sex: Female
  Weight: 65.77 kg

DRUGS (1)
  1. ESTRADIOL PATCH SANDOZ [Suspect]
     Active Substance: ESTRADIOL
     Indication: MENOPAUSE
     Dosage: RX PER 100
     Dates: start: 20160216

REACTIONS (4)
  - Hyperhidrosis [None]
  - Feeling abnormal [None]
  - Palpitations [None]
  - Blood pressure increased [None]

NARRATIVE: CASE EVENT DATE: 20160216
